FAERS Safety Report 7505447-2 (Version None)
Quarter: 2011Q2

REPORT INFORMATION
  Report Type: 
  Country: None (occurrence: None)
  Receive Date: 20110526
  Receipt Date: 20110523
  Transmission Date: 20111010
  Serious: Yes (Death, Hospitalization)
  Sender: FDA-Public Use
  Company Number: PHHY2011BR44279

PATIENT
  Sex: Female

DRUGS (2)
  1. EXELON [Suspect]
     Dosage: 18MG/10CM^2;1 PATCH EVERY 24 HOURS
     Route: 062
     Dates: start: 20080101
  2. EXELON [Suspect]
     Indication: DEMENTIA ALZHEIMER'S TYPE
     Dosage: 9 MG/10CM^2;1 PATCH EVERY 24 HOURS
     Route: 062
     Dates: start: 20070101, end: 20080101

REACTIONS (9)
  - PNEUMONIA [None]
  - DEHYDRATION [None]
  - URINARY TRACT INFECTION [None]
  - AMNESIA [None]
  - HYPERTENSION [None]
  - SEPSIS [None]
  - DEMENTIA ALZHEIMER'S TYPE [None]
  - TYPE 2 DIABETES MELLITUS [None]
  - MENTAL DISORDER [None]
